FAERS Safety Report 6751009-4 (Version None)
Quarter: 2010Q2

REPORT INFORMATION
  Report Type: 
  Country: None (occurrence: None)
  Receive Date: 20100526
  Receipt Date: 20100511
  Transmission Date: 20101027
  Serious: Yes (Death, Life-Threatening)
  Sender: FDA-Public Use
  Company Number: 2010001923

PATIENT
  Age: 77 Year
  Sex: Male
  Weight: 64.4 kg

DRUGS (10)
  1. ERLOTINIB HYDROCHLORIDE [Suspect]
     Indication: LUNG ADENOCARCINOMA
     Dosage: (150 MG, QD), ORAL
     Route: 048
     Dates: start: 20080226, end: 20080708
  2. LOXOPROFEN SODIUM (LOXOPROFEN SODIUM) [Suspect]
     Indication: DRUG USE FOR UNKNOWN INDICATION
     Dosage: (180 MG, QD), ORAL
     Route: 048
     Dates: start: 20080701, end: 20080708
  3. VALPROATE SODIUM [Concomitant]
  4. KETOPROFEN [Concomitant]
  5. MUCOSTA (REBAMIPIDE) [Concomitant]
  6. OMEPRAZOLE [Concomitant]
  7. CARBAZOCHROME (CARBAZOCHROME) [Concomitant]
  8. TRANSAMIN (TRANEXAMIC ACID) [Concomitant]
  9. BUMINATE (ALBUMIN NORMAL HUMAN SERUM) [Concomitant]
  10. CEFMETAZOLE SODIUM (CEFMETAZOLE SODIUM) [Concomitant]

REACTIONS (10)
  - ALANINE AMINOTRANSFERASE INCREASED [None]
  - ANAEMIA [None]
  - ASPARTATE AMINOTRANSFERASE INCREASED [None]
  - GASTRIC PERFORATION [None]
  - GASTRIC ULCER HAEMORRHAGE [None]
  - HEPATIC FUNCTION ABNORMAL [None]
  - LUNG ADENOCARCINOMA [None]
  - MALIGNANT NEOPLASM PROGRESSION [None]
  - MULTI-ORGAN FAILURE [None]
  - RENAL FAILURE ACUTE [None]
